FAERS Safety Report 16457836 (Version 1)
Quarter: 2019Q2

REPORT INFORMATION
  Report Type: Spontaneous
  Country: JP (occurrence: JP)
  Receive Date: 20190620
  Receipt Date: 20190620
  Transmission Date: 20190711
  Serious: Yes (Hospitalization)
  Sender: FDA-Public Use
  Company Number: JP-BAYER-2019-114882

PATIENT
  Age: 85 Year
  Sex: Male

DRUGS (1)
  1. XOFIGO [Suspect]
     Active Substance: RADIUM RA-223 DICHLORIDE
     Dosage: 55KBQ/KG
     Route: 042

REACTIONS (2)
  - Pneumonia [None]
  - Cognitive disorder [None]

NARRATIVE: CASE EVENT DATE: 201906
